FAERS Safety Report 22660476 (Version 4)
Quarter: 2023Q4

REPORT INFORMATION
  Report Type: Report from Study
  Country: US (occurrence: None)
  Receive Date: 20230630
  Receipt Date: 20231031
  Transmission Date: 20240109
  Serious: Yes (Hospitalization)
  Sender: FDA-Public Use
  Company Number: US-ROCHE-3362148

PATIENT
  Age: 58 Year
  Sex: Male

DRUGS (15)
  1. ATEZOLIZUMAB [Suspect]
     Active Substance: ATEZOLIZUMAB
     Indication: Colorectal cancer
     Dosage: ON 25/MAY/2023 PATIENT RECEIVED THE MOST RECENT DOSE OF PRIOR TO EVENT (FATIGUE) ONSET.?ON 05/JUN/20
     Route: 041
     Dates: start: 20230515
  2. ZANZALINTINIB [Suspect]
     Active Substance: ZANZALINTINIB
     Indication: Colorectal cancer
     Dosage: ON 25 MAY 2023, THE PATIENT RECEIVED THE MOST RECENT DOSE OF XL092?ON 20 JUN 2023, THE PATIENT RECEI
     Route: 048
     Dates: start: 20230515
  3. ZYRTEC [Concomitant]
     Active Substance: CETIRIZINE HYDROCHLORIDE
     Dates: start: 20230518
  4. TYLENOL [Concomitant]
     Active Substance: ACETAMINOPHEN
     Dates: start: 20230510
  5. TESSALON [Concomitant]
     Active Substance: BENZONATATE
     Dates: start: 20230518
  6. CLARITIN [Concomitant]
     Active Substance: LORATADINE
     Dates: start: 20080101
  7. LOPERAMIDE [Concomitant]
     Active Substance: LOPERAMIDE
     Dates: start: 20230522
  8. SIMETHICONE (DIMETHICONE) [Concomitant]
     Active Substance: DIMETHICONE
     Dates: start: 20230515
  9. AMBIEN [Concomitant]
     Active Substance: ZOLPIDEM TARTRATE
     Dates: start: 20230510, end: 20230603
  10. BISACODYL [Concomitant]
     Active Substance: BISACODYL
     Dates: start: 20190101
  11. MIRALAX [Concomitant]
     Active Substance: POLYETHYLENE GLYCOL 3350
     Dates: start: 20230515
  12. FLOMAX [Concomitant]
     Active Substance: TAMSULOSIN HYDROCHLORIDE
  13. HYCODAN (UNITED STATES) [Concomitant]
  14. LYRICA [Concomitant]
     Active Substance: PREGABALIN
  15. SODIUM CHLORIDE [Concomitant]
     Active Substance: SODIUM CHLORIDE

REACTIONS (2)
  - Enterocolitis infectious [Recovered/Resolved]
  - Pain [Not Recovered/Not Resolved]

NARRATIVE: CASE EVENT DATE: 20230526
